FAERS Safety Report 19377736 (Version 1)
Quarter: 2021Q2

REPORT INFORMATION
  Report Type: Spontaneous
  Country: BR (occurrence: BR)
  Receive Date: 20210605
  Receipt Date: 20210605
  Transmission Date: 20210717
  Serious: Yes (Life-Threatening, Other)
  Sender: FDA-Public Use
  Company Number: BR-ACCORD-227147

PATIENT
  Age: 62 Year
  Sex: Female

DRUGS (4)
  1. FLUOROURACIL. [Suspect]
     Active Substance: FLUOROURACIL
     Indication: ADENOCARCINOMA PANCREAS
     Dosage: 400 MG/SQUARE METRE (DAY 1, FOR 10 MIN), SPACED APART FOR 2 WK,
  2. FOLINIC ACID [Suspect]
     Active Substance: LEUCOVORIN
     Indication: ADENOCARCINOMA PANCREAS
     Dosage: 400 MG/SQUARE METRE (DAY 1, FOR 120 MIN), SPACED APART FOR 2 WK
  3. IRINOTECAN [Suspect]
     Active Substance: IRINOTECAN
     Indication: ADENOCARCINOMA PANCREAS
     Dosage: 180 MG/SQUARE METRE (DAY 1, FOR 90 MIN), SPACED APART FOR 2 WK,
  4. OXALIPLATIN. [Suspect]
     Active Substance: OXALIPLATIN
     Indication: ADENOCARCINOMA PANCREAS
     Dosage: 85 MG/SQUARE METRE (DAY 1, FOR 120 MIN), SPACED APART FOR 2 WK

REACTIONS (2)
  - Off label use [Unknown]
  - Treatment failure [Unknown]
